FAERS Safety Report 11275140 (Version 1)
Quarter: 2015Q3

REPORT INFORMATION
  Report Type: Report from Study
  Country: BE (occurrence: None)
  Receive Date: 20150714
  Receipt Date: 20150714
  Transmission Date: 20151125
  Serious: Yes (Hospitalization)
  Sender: FDA-Public Use
  Company Number: KAD201507-002147

PATIENT
  Age: 59 Year
  Sex: Female

DRUGS (3)
  1. ABT-450/RITONAVIR/ABT-267 (OMBITASVIR, PARITAPREVIR, RITONAVIR) [Suspect]
     Active Substance: OMBITASVIR\PARITAPREVIR\RITONAVIR
     Indication: CHRONIC HEPATITIS C
     Dosage: 150/100/25 MG
     Route: 048
     Dates: start: 20150427, end: 20150621
  2. ABT-333 (DASABUVIR) [Suspect]
     Active Substance: DASABUVIR
     Indication: CHRONIC HEPATITIS C
     Dosage: TABLET, 500 MG (250 MG, 2 IN 1 DAY)
     Route: 048
     Dates: start: 20150427, end: 20150621
  3. RIBAVIRIN 200 MG TABLETS (RIBAVIRIN) [Suspect]
     Active Substance: RIBAVIRIN
     Indication: CHRONIC HEPATITIS C
     Dosage: DIVIDE DOSES DAILY (TOTAL DAILY DOSE: 100 0 MG) (200 MG)
     Route: 048
     Dates: start: 20150427, end: 20150621

REACTIONS (6)
  - Internal haemorrhage [None]
  - Hepatic encephalopathy [None]
  - Hepatic failure [None]
  - Hypotension [None]
  - Hepatorenal syndrome [None]
  - Gingival bleeding [None]

NARRATIVE: CASE EVENT DATE: 20150623
